FAERS Safety Report 8862130 (Version 1)
Quarter: 2012Q4

REPORT INFORMATION
  Report Type: 
  Country: US (occurrence: US)
  Receive Date: 20121026
  Receipt Date: 20121026
  Transmission Date: 20130627
  Serious: Yes (Death)
  Sender: FDA-Public Use
  Company Number: US-ROXANE LABORATORIES, INC.-2012-RO-02076RO

PATIENT
  Age: 50 Year

DRUGS (3)
  1. ALPRAZOLAM INTENSOL [ORAL SOLUTION (CONCENTRATE)] 1 MG/ML [Suspect]
  2. CARBON MONOXIDE [Suspect]
  3. ACETAMINOPHEN\PROPOXYPHENE [Suspect]

REACTIONS (1)
  - Completed suicide [Fatal]
